FAERS Safety Report 16254590 (Version 1)
Quarter: 2019Q2

REPORT INFORMATION
  Report Type: Spontaneous
  Country: US (occurrence: US)
  Receive Date: 20190430
  Receipt Date: 20190430
  Transmission Date: 20190711
  Serious: Yes (Other)
  Sender: FDA-Public Use
  Company Number: US-AUROBINDO-AUR-APL-2019-023490

PATIENT

DRUGS (2)
  1. KENALOG [Concomitant]
     Active Substance: TRIAMCINOLONE ACETONIDE
     Indication: VERTEBRAL FORAMINAL STENOSIS
     Dosage: UNK
     Route: 008
  2. LIDOCAINE HYDROCHLORIDE INJECTION USP (AMPULES) 1%(10MG/ML) [Suspect]
     Active Substance: LIDOCAINE HYDROCHLORIDE
     Indication: VERTEBRAL FORAMINAL STENOSIS
     Dosage: UNK
     Route: 008

REACTIONS (2)
  - Urinary incontinence [Recovered/Resolved]
  - Anal hypoaesthesia [Recovered/Resolved]
